FAERS Safety Report 10303491 (Version 2)
Quarter: 2014Q3

REPORT INFORMATION
  Report Type: Spontaneous
  Country: JP (occurrence: JP)
  Receive Date: 20140714
  Receipt Date: 20140827
  Transmission Date: 20150326
  Serious: No
  Sender: FDA-Public Use
  Company Number: JP-ELI_LILLY_AND_COMPANY-JP201407002594

PATIENT
  Age: 75 Year
  Sex: Male

DRUGS (3)
  1. CYMBALTA [Suspect]
     Active Substance: DULOXETINE HYDROCHLORIDE
     Indication: POST STROKE DEPRESSION
     Dosage: 20 MG, UNK
     Route: 048
     Dates: start: 201406, end: 201406
  2. CYMBALTA [Suspect]
     Active Substance: DULOXETINE HYDROCHLORIDE
     Dosage: 40 MG, UNK
     Route: 048
     Dates: start: 201406, end: 201406
  3. ZYPREXA [Suspect]
     Active Substance: OLANZAPINE
     Indication: POST STROKE DEPRESSION
     Dosage: UNK
     Route: 048
     Dates: start: 201405

REACTIONS (2)
  - Off label use [Not Recovered/Not Resolved]
  - Hepatic function abnormal [Recovered/Resolved]

NARRATIVE: CASE EVENT DATE: 201405
